FAERS Safety Report 9461488 (Version 1)
Quarter: 2013Q3

REPORT INFORMATION
  Report Type: Report from Study
  Country: AR (occurrence: AR)
  Receive Date: 20130816
  Receipt Date: 20130816
  Transmission Date: 20140515
  Serious: Yes (Other)
  Sender: FDA-Public Use
  Company Number: PHHY2013AR088179

PATIENT
  Sex: Female

DRUGS (1)
  1. ONBREZ [Suspect]
     Indication: CHRONIC OBSTRUCTIVE PULMONARY DISEASE
     Dosage: 150 UG, QD

REACTIONS (8)
  - Agitation [Recovering/Resolving]
  - Muscular weakness [Recovering/Resolving]
  - Mobility decreased [Recovering/Resolving]
  - Cold sweat [Recovering/Resolving]
  - Bronchospasm [Recovering/Resolving]
  - Myalgia [Recovering/Resolving]
  - Tachycardia [Recovering/Resolving]
  - Palpitations [Recovering/Resolving]
